FAERS Safety Report 11185790 (Version 1)
Quarter: 2015Q2

REPORT INFORMATION
  Report Type: Spontaneous
  Country: RU (occurrence: RU)
  Receive Date: 20150612
  Receipt Date: 20150612
  Transmission Date: 20150821
  Serious: Yes (Other)
  Sender: FDA-Public Use
  Company Number: RU-SYMPLMED PHARMACEUTICALS-2015SYMPLMED000022

PATIENT

DRUGS (2)
  1. GLUCONORM                          /01182201/ [Concomitant]
     Indication: DIABETES MELLITUS
  2. PRESTANCE [Suspect]
     Active Substance: AMLODIPINE BESYLATE\PERINDOPRIL ARGININE
     Indication: HYPERTENSION
     Dosage: 1 (10MG/10MG) TABLET, QD
     Route: 048
     Dates: start: 201503, end: 20150605

REACTIONS (3)
  - Diplopia [Recovered/Resolved]
  - Impaired driving ability [Recovered/Resolved]
  - Visual acuity reduced [Recovered/Resolved]

NARRATIVE: CASE EVENT DATE: 201505
